FAERS Safety Report 14173440 (Version 1)
Quarter: 2017Q4

REPORT INFORMATION
  Report Type: Spontaneous
  Country: US (occurrence: US)
  Receive Date: 20171109
  Receipt Date: 20171109
  Transmission Date: 20180321
  Serious: Yes (Other)
  Sender: FDA-Public Use
  Company Number: US-BRISTOL-MYERS SQUIBB COMPANY-BMS-2017-101184

PATIENT
  Sex: Female

DRUGS (4)
  1. ASPIRIN                            /00002701/ [Concomitant]
     Active Substance: ASPIRIN
     Indication: PRODUCT USED FOR UNKNOWN INDICATION
     Route: 065
  2. ABILIFY [Suspect]
     Active Substance: ARIPIPRAZOLE
     Indication: FIBROMYALGIA
     Dosage: 2 MG, BID
     Route: 065
     Dates: start: 2016, end: 2016
  3. VITAMIN B12 [Concomitant]
     Active Substance: CYANOCOBALAMIN
     Indication: PRODUCT USED FOR UNKNOWN INDICATION
     Route: 065
  4. LISINOPRIL. [Concomitant]
     Active Substance: LISINOPRIL
     Indication: HYPERTENSION
     Dosage: UNK
     Route: 065

REACTIONS (10)
  - Diabetes mellitus [Unknown]
  - Weight decreased [Unknown]
  - Off label use [Unknown]
  - Memory impairment [Recovering/Resolving]
  - Obsessive-compulsive disorder [Recovering/Resolving]
  - Product use in unapproved indication [Unknown]
  - Fear [Recovering/Resolving]
  - Emotional disorder [Unknown]
  - Suicidal ideation [Unknown]
  - Weight increased [Recovered/Resolved]

NARRATIVE: CASE EVENT DATE: 2016
